FAERS Safety Report 13446852 (Version 1)
Quarter: 2017Q2

REPORT INFORMATION
  Report Type: Spontaneous
  Country: US (occurrence: US)
  Receive Date: 20170417
  Receipt Date: 20170417
  Transmission Date: 20170830
  Serious: No
  Sender: FDA-Public Use
  Company Number: US-PFIZER INC-2017157330

PATIENT
  Age: 63 Year
  Sex: Male

DRUGS (1)
  1. XELJANZ XR [Suspect]
     Active Substance: TOFACITINIB CITRATE
     Indication: ARTHRITIS
     Dosage: 11 MG, UNK
     Dates: start: 201609

REACTIONS (6)
  - Fatigue [Unknown]
  - Diarrhoea [Unknown]
  - Rosacea [Unknown]
  - Pain in extremity [Unknown]
  - Nocturia [Unknown]
  - Glomerular filtration rate decreased [Unknown]
